FAERS Safety Report 25571692 (Version 1)
Quarter: 2025Q3

REPORT INFORMATION
  Report Type: Spontaneous
  Country: EU (occurrence: EU)
  Receive Date: 20250717
  Receipt Date: 20250717
  Transmission Date: 20251021
  Serious: Yes (Other)
  Sender: BAYER HEALTHCARE PHARMACEUTICALS INC.
  Company Number: None

PATIENT
  Sex: Female

DRUGS (4)
  1. CIPROFLOXACIN [Interacting]
     Active Substance: CIPROFLOXACIN
  2. DEXAMETHASONE [Interacting]
     Active Substance: DEXAMETHASONE
  3. MORPHINE [Interacting]
     Active Substance: MORPHINE
     Indication: Breast cancer stage IV
  4. MORPHINE [Interacting]
     Active Substance: MORPHINE
     Indication: Cancer pain

REACTIONS (2)
  - Rhabdomyolysis [Recovered/Resolved]
  - Drug interaction [Recovered/Resolved]
